FAERS Safety Report 4957916-7 (Version None)
Quarter: 2006Q1

REPORT INFORMATION
  Report Type: 
  Country: None (occurrence: None)
  Receive Date: 20060324
  Receipt Date: 20060314
  Transmission Date: 20060701
  Serious: Yes (Disabling, Other)
  Sender: FDA-Public Use
  Company Number: 2005147411

PATIENT
  Age: 56 Year
  Sex: Female
  Weight: 50 kg

DRUGS (5)
  1. MINOXIDIL [Suspect]
     Indication: ALOPECIA
     Dosage: TOPICAL
     Route: 061
     Dates: start: 20050915, end: 20051015
  2. ORGANIC SILICIUM (ORGANIC SILICIUM) [Suspect]
     Indication: ALOPECIA
     Dosage: AMOUNT TID, ORAL
     Route: 048
     Dates: start: 20050915, end: 20051016
  3. MOXIFLOXACIN HCL [Concomitant]
  4. BETAMETHASONE [Concomitant]
  5. PREDNISOLONE SODIUM SULFOBENZOATE (PREDNISOLONE SODIUM SULFOBENZOATE) [Concomitant]

REACTIONS (7)
  - AGEUSIA [None]
  - ANOSMIA [None]
  - EYE PAIN [None]
  - IRIDOCYCLITIS [None]
  - MYDRIASIS [None]
  - PARAESTHESIA [None]
  - PARAESTHESIA ORAL [None]
